FAERS Safety Report 18457456 (Version 1)
Quarter: 2020Q4

REPORT INFORMATION
  Report Type: Spontaneous
  Country: US (occurrence: US)
  Receive Date: 20201030
  Receipt Date: 20201030
  Transmission Date: 20210114
  Serious: Yes (Hospitalization, Other)
  Sender: FDA-Public Use
  Company Number: US-TEVA-2020-US-1842827

PATIENT
  Age: 7 Year
  Sex: Female

DRUGS (1)
  1. EPINEPHRINE TEVA [Suspect]
     Active Substance: EPINEPHRINE
     Indication: ANAPHYLACTIC SHOCK
     Dosage: 0.15 MG / 0.3 ML
     Route: 065
     Dates: start: 20201022

REACTIONS (3)
  - Anaphylactic shock [Unknown]
  - Drug ineffective [Unknown]
  - Dyspnoea [Unknown]

NARRATIVE: CASE EVENT DATE: 20201022
